FAERS Safety Report 19159825 (Version 2)
Quarter: 2021Q2

REPORT INFORMATION
  Report Type: Report from Study
  Country: BD (occurrence: BD)
  Receive Date: 20210420
  Receipt Date: 20210428
  Transmission Date: 20210717
  Serious: Yes (Death, Hospitalization)
  Sender: FDA-Public Use
  Company Number: NVSC2021BD089003

PATIENT
  Age: 23 Year
  Sex: Female
  Weight: 29 kg

DRUGS (2)
  1. MAXPRO [Concomitant]
     Indication: GASTRITIS
     Dosage: UNK
     Route: 065
  2. SANDIMMUN NEORAL [Suspect]
     Active Substance: CYCLOSPORINE
     Indication: APLASTIC ANAEMIA
     Dosage: 100 MG, UNKNOWN
     Route: 048
     Dates: start: 20201130, end: 20210413

REACTIONS (4)
  - Paralysis [Fatal]
  - Product use in unapproved indication [Unknown]
  - Hyperpyrexia [Fatal]
  - Weight decreased [Unknown]

NARRATIVE: CASE EVENT DATE: 20210413
